FAERS Safety Report 16279093 (Version 2)
Quarter: 2019Q2

REPORT INFORMATION
  Report Type: Spontaneous
  Country: KR (occurrence: KR)
  Receive Date: 20190506
  Receipt Date: 20190527
  Transmission Date: 20190711
  Serious: Yes (Other)
  Sender: FDA-Public Use
  Company Number: KR-SEPTODONT-201905212

PATIENT

DRUGS (1)
  1. POSICAINE (ARTICAINE HYDROCHLORIDE\EPINEPHRINE BITARTRATE) [Suspect]
     Active Substance: ARTICAINE HYDROCHLORIDE\EPINEPHRINE BITARTRATE
     Indication: DENTAL LOCAL ANAESTHESIA
     Dates: start: 201904, end: 201904

REACTIONS (1)
  - Tongue paralysis [Unknown]

NARRATIVE: CASE EVENT DATE: 201904
